FAERS Safety Report 9538767 (Version 1)
Quarter: 2013Q2

REPORT INFORMATION
  Report Type: Spontaneous
  Country: US (occurrence: None)
  Receive Date: 20130507
  Receipt Date: 20130507
  Transmission Date: 20140414
  Serious: No
  Sender: FDA-Public Use
  Company Number: PHEH2012US025321

PATIENT
  Age: 55 Year
  Sex: Female

DRUGS (5)
  1. AFINITOR (RAD) UNKNOWN [Suspect]
     Indication: TUBEROUS SCLEROSIS
     Route: 048
     Dates: start: 20121205
  2. FENOFIBRATE (FENOFIBRATE) (FENOFIBRATE) [Concomitant]
  3. PREMARIN VAGINAL CREAM (ESTROGENS CONJUGATED) [Concomitant]
  4. VITAMIN D (ERGOCALCIFEROL) [Concomitant]
  5. CALCIUM (CALCIUM) [Concomitant]

REACTIONS (5)
  - Anxiety [None]
  - Joint swelling [None]
  - Rash [None]
  - Oral pain [None]
  - Dyspnoea [None]
